FAERS Safety Report 16906299 (Version 1)
Quarter: 2019Q4

REPORT INFORMATION
  Report Type: Spontaneous
  Country: PT (occurrence: PT)
  Receive Date: 20191011
  Receipt Date: 20191011
  Transmission Date: 20200122
  Serious: Yes (Hospitalization)
  Sender: FDA-Public Use
  Company Number: PT-TEVA-2019-PT-1120243

PATIENT
  Age: 58 Year
  Sex: Male

DRUGS (2)
  1. COPAXONE [Suspect]
     Active Substance: GLATIRAMER ACETATE
     Route: 058
     Dates: start: 20170102
  2. COPAXONE [Suspect]
     Active Substance: GLATIRAMER ACETATE
     Indication: MULTIPLE SCLEROSIS
     Route: 058

REACTIONS (12)
  - Hypotension [Unknown]
  - Off label use [Unknown]
  - Colitis ischaemic [Unknown]
  - Rash [Unknown]
  - Hypokalaemia [Unknown]
  - Nausea [Unknown]
  - Constipation [Unknown]
  - Oxygen saturation abnormal [Unknown]
  - Pallor [Unknown]
  - Drug intolerance [Unknown]
  - Hyponatraemia [Unknown]
  - Vomiting [Unknown]

NARRATIVE: CASE EVENT DATE: 2019
